FAERS Safety Report 8921143 (Version 1)
Quarter: 2012Q4

REPORT INFORMATION
  Report Type: 
  Country: SE (occurrence: SE)
  Receive Date: 20121121
  Receipt Date: 20121121
  Transmission Date: 20130627
  Serious: Yes (Hospitalization)
  Sender: FDA-Public Use
  Company Number: SE-PFIZER INC-2012287666

PATIENT
  Age: 61 Year
  Sex: Female
  Weight: 76 kg

DRUGS (13)
  1. GENOTROPIN [Suspect]
     Indication: GROWTH HORMONE DEFICIENCY
     Dosage: 0.4 mg, 1x/day,7 injections/week
     Route: 058
     Dates: start: 19960219
  2. CITODON [Concomitant]
     Indication: NEURALGIA
     Dosage: UNK
     Dates: start: 20021130
  3. CITODON [Concomitant]
     Indication: NEURITIS
  4. TIMOSAN [Concomitant]
     Indication: GLAUCOMA
     Dosage: UNK
     Dates: start: 20030615
  5. LIPITOR [Concomitant]
     Indication: HYPERLIPIDEMIA
     Dosage: UNK
     Dates: start: 20030616
  6. ATACAND [Concomitant]
     Indication: ESSENTIAL HYPERTENSION
     Dosage: UNK
     Dates: start: 20030617
  7. LEVAXIN [Concomitant]
     Indication: TSH DECREASED
     Dosage: UNK
     Dates: start: 20001218
  8. LEVAXIN [Concomitant]
     Indication: PRIMARY HYPOTHYROIDISM
  9. PRAVIDEL [Concomitant]
     Indication: GALACTOSAEMIA
     Dosage: UNK
     Dates: start: 19781101
  10. SELOKEN ZOC [Concomitant]
     Indication: ESSENTIAL HYPERTENSION
     Dosage: UNK
     Dates: start: 19990215
  11. NEXIUM [Concomitant]
     Indication: GASTRITIS
     Dosage: UNK
     Dates: start: 20030207
  12. NEXIUM [Concomitant]
     Indication: DUODENITIS
  13. HYDROCORTONE [Concomitant]
     Indication: ACTH DECREASED
     Dosage: UNK
     Dates: start: 20030616

REACTIONS (1)
  - Breast disorder [Unknown]
